FAERS Safety Report 5890993-8 (Version None)
Quarter: 2008Q3

REPORT INFORMATION
  Report Type: 
  Country: None (occurrence: None)
  Receive Date: 20080922
  Receipt Date: 20080910
  Transmission Date: 20090109
  Serious: Yes (Other)
  Sender: FDA-Public Use
  Company Number: B0536402A

PATIENT
  Age: 51 Year
  Sex: Male
  Weight: 91 kg

DRUGS (4)
  1. KIVEXA [Suspect]
     Indication: HIV INFECTION
     Route: 048
     Dates: start: 20080228
  2. EFAVIRENZ [Concomitant]
     Route: 065
  3. METFORMIN HCL [Concomitant]
     Route: 065
  4. PRAVASTATIN SODIUM [Concomitant]
     Route: 065
     Dates: start: 20080201

REACTIONS (1)
  - HEPATITIS [None]
